FAERS Safety Report 18434894 (Version 2)
Quarter: 2020Q4

REPORT INFORMATION
  Report Type: Spontaneous
  Country: US (occurrence: US)
  Receive Date: 20201028
  Receipt Date: 20201108
  Transmission Date: 20210114
  Serious: Yes (Hospitalization)
  Sender: FDA-Public Use
  Company Number: US-ROCHE-2671067

PATIENT
  Sex: Male
  Weight: 118.04 kg

DRUGS (10)
  1. IRON [Concomitant]
     Active Substance: IRON
     Route: 048
     Dates: start: 20190919
  2. ULORIC [Concomitant]
     Active Substance: FEBUXOSTAT
     Route: 048
     Dates: start: 20190919
  3. RITUXAN [Suspect]
     Active Substance: RITUXIMAB
     Indication: GLOMERULONEPHRITIS
     Route: 041
     Dates: start: 20190924
  4. IRON [Concomitant]
     Active Substance: IRON
     Route: 048
     Dates: start: 20200901
  5. OMEPRAZOLE. [Concomitant]
     Active Substance: OMEPRAZOLE
     Route: 048
     Dates: start: 20190919
  6. LISINOPRIL. [Concomitant]
     Active Substance: LISINOPRIL
     Route: 048
     Dates: start: 20190919
  7. RITUXAN [Suspect]
     Active Substance: RITUXIMAB
     Indication: SYSTEMIC LUPUS ERYTHEMATOSUS
     Route: 041
     Dates: start: 20190924
  8. RITUXAN [Suspect]
     Active Substance: RITUXIMAB
     Dosage: ONGOING: UNKNOWN
     Route: 041
  9. ONDANSETRON HYDROCHLORIDE. [Concomitant]
     Active Substance: ONDANSETRON HYDROCHLORIDE
     Route: 048
     Dates: start: 20190919
  10. RITUXAN [Suspect]
     Active Substance: RITUXIMAB
     Route: 041
     Dates: start: 2015

REACTIONS (5)
  - Off label use [Unknown]
  - Abdominal pain [Recovered/Resolved]
  - Intentional product use issue [Unknown]
  - Dyspnoea [Recovered/Resolved]
  - Heart rate increased [Recovered/Resolved]

NARRATIVE: CASE EVENT DATE: 2015
